FAERS Safety Report 13107017 (Version 3)
Quarter: 2017Q1

REPORT INFORMATION
  Report Type: Report from Study
  Country: None (occurrence: CA)
  Receive Date: 20170111
  Receipt Date: 20170131
  Transmission Date: 20170428
  Serious: Yes (Death, Hospitalization, Other)
  Sender: FDA-Public Use
  Company Number: CA-ABBVIE-17K-028-1836656-00

PATIENT
  Age: 68 Year
  Sex: Male
  Weight: 85 kg

DRUGS (3)
  1. FRAGMIN [Concomitant]
     Active Substance: DALTEPARIN SODIUM
     Indication: CENTRAL VENOUS CATHETERISATION
  2. HUMIRA [Suspect]
     Active Substance: ADALIMUMAB
     Indication: COLITIS ULCERATIVE
     Route: 058
     Dates: start: 20140417, end: 201608
  3. FRAGMIN [Concomitant]
     Active Substance: DALTEPARIN SODIUM
     Indication: DEEP VEIN THROMBOSIS
     Route: 058
     Dates: start: 201605, end: 201701

REACTIONS (9)
  - Hepatic cancer [Fatal]
  - Colorectal cancer metastatic [Fatal]
  - Bacteraemia [Fatal]
  - Bile duct obstruction [Unknown]
  - Metastases to bone [Fatal]
  - Jaundice [Unknown]
  - Abdominal pain [Unknown]
  - Interstitial lung disease [Unknown]
  - Colon cancer metastatic [Fatal]

NARRATIVE: CASE EVENT DATE: 201603
